FAERS Safety Report 19039648 (Version 2)
Quarter: 2021Q2

REPORT INFORMATION
  Report Type: Report from Study
  Country: US (occurrence: US)
  Receive Date: 20210322
  Receipt Date: 20210511
  Transmission Date: 20210717
  Serious: Yes (Other)
  Sender: FDA-Public Use
  Company Number: US-OTSUKA-2021_008891

PATIENT
  Age: 28 Year
  Sex: Male
  Weight: 126.98 kg

DRUGS (4)
  1. CALCITRIOL. [Concomitant]
     Active Substance: CALCITRIOL
     Indication: PRODUCT USED FOR UNKNOWN INDICATION
     Dosage: UNK
     Route: 065
  2. TOLVAPTAN [Suspect]
     Active Substance: TOLVAPTAN
     Indication: CONGENITAL CYSTIC KIDNEY DISEASE
     Dosage: 60 MG, QD (EVERY MORNING)
     Route: 048
     Dates: start: 20190612
  3. TOLVAPTAN [Suspect]
     Active Substance: TOLVAPTAN
     Dosage: 30 MG, QD (8 HRS LATER)
     Route: 048
     Dates: start: 20190612
  4. NIFEDIPINE. [Concomitant]
     Active Substance: NIFEDIPINE
     Indication: PRODUCT USED FOR UNKNOWN INDICATION
     Dosage: UNK
     Route: 065

REACTIONS (2)
  - Drug resistance [Not Recovered/Not Resolved]
  - Renal impairment [Not Recovered/Not Resolved]

NARRATIVE: CASE EVENT DATE: 20210215
